FAERS Safety Report 6310627-8 (Version None)
Quarter: 2009Q3

REPORT INFORMATION
  Report Type: 
  Country: None (occurrence: None)
  Receive Date: 20090814
  Receipt Date: 20090811
  Transmission Date: 20100115
  Serious: Yes (Death)
  Sender: FDA-Public Use
  Company Number: MW-GILEAD-2009-0023262

PATIENT
  Age: 40 Year
  Sex: Male
  Weight: 44.3 kg

DRUGS (7)
  1. TRUVADA [Suspect]
     Indication: HIV INFECTION
     Route: 048
     Dates: start: 20090128, end: 20090619
  2. STOCRIN [Suspect]
     Indication: HIV INFECTION
     Route: 048
     Dates: start: 20090128, end: 20090619
  3. COTRIM [Concomitant]
  4. RIFAMPICIN [Concomitant]
  5. ETHAMBUTOL [Concomitant]
  6. PYRAZINAMIDE [Concomitant]
  7. ISONIAZID [Concomitant]

REACTIONS (1)
  - MENINGITIS TUBERCULOUS [None]
